FAERS Safety Report 9741556 (Version 1)
Quarter: 2013Q4

REPORT INFORMATION
  Report Type: Spontaneous
  Country: DK (occurrence: DK)
  Receive Date: 20131210
  Receipt Date: 20131210
  Transmission Date: 20140711
  Serious: Yes (Life-Threatening, Hospitalization, Other)
  Sender: FDA-Public Use
  Company Number: PHHY2013DK140916

PATIENT
  Sex: Female

DRUGS (2)
  1. DICILLIN [Suspect]
     Indication: LOCALISED INFECTION
     Dosage: 8 DF, A DAY
     Route: 048
     Dates: start: 201309, end: 201311
  2. RIFAMPICIN [Concomitant]
     Indication: LOCALISED INFECTION
     Dosage: 3 DF, UNK

REACTIONS (12)
  - Anaphylactic shock [Recovered/Resolved]
  - Dizziness [Recovered/Resolved]
  - Malaise [Recovered/Resolved]
  - Ocular hyperaemia [Recovered/Resolved]
  - Pyrexia [Unknown]
  - Pruritus [Recovered/Resolved]
  - Blister [Recovered/Resolved]
  - Butterfly rash [Recovered/Resolved]
  - Renal injury [Recovered/Resolved]
  - Chromaturia [Recovered/Resolved]
  - Confusional state [Unknown]
  - Drug administration error [Unknown]
